FAERS Safety Report 12959089 (Version 1)
Quarter: 2016Q4

REPORT INFORMATION
  Report Type: Spontaneous
  Country: US (occurrence: US)
  Receive Date: 20161118
  Receipt Date: 20161118
  Transmission Date: 20170207
  Serious: Yes (Life-Threatening, Hospitalization)
  Sender: FDA-Public Use
  Company Number: None

PATIENT
  Age: 76 Year
  Sex: Female

DRUGS (1)
  1. CELECOXIB 200MG [Suspect]
     Active Substance: CELECOXIB
     Indication: ARTHRALGIA
     Route: 048
     Dates: start: 20160916, end: 20161029

REACTIONS (2)
  - Blood pressure decreased [None]
  - Syncope [None]

NARRATIVE: CASE EVENT DATE: 20161029
